FAERS Safety Report 12328492 (Version 1)
Quarter: 2016Q2

REPORT INFORMATION
  Report Type: Spontaneous
  Country: US (occurrence: US)
  Receive Date: 20160503
  Receipt Date: 20160503
  Transmission Date: 20160815
  Serious: No
  Sender: FDA-Public Use
  Company Number: US-BEH-2015048490

PATIENT
  Sex: Female
  Weight: 92 kg

DRUGS (22)
  1. FLOVENT [Concomitant]
     Active Substance: FLUTICASONE PROPIONATE
  2. HIZENTRA [Suspect]
     Active Substance: HUMAN IMMUNOGLOBULIN G
     Route: 058
  3. SYNTHROID [Concomitant]
     Active Substance: LEVOTHYROXINE SODIUM
  4. BIOTIN [Concomitant]
     Active Substance: BIOTIN
  5. BENICAR [Concomitant]
     Active Substance: OLMESARTAN MEDOXOMIL
  6. EPIPEN [Concomitant]
     Active Substance: EPINEPHRINE
  7. FUROSEMIDE. [Concomitant]
     Active Substance: FUROSEMIDE
  8. PROPAFENONE. [Concomitant]
     Active Substance: PROPAFENONE
  9. POTASSIUM CHLORIDE. [Concomitant]
     Active Substance: POTASSIUM CHLORIDE
  10. TURBUTALINE [Concomitant]
  11. SPIRIVA [Concomitant]
     Active Substance: TIOTROPIUM BROMIDE MONOHYDRATE
  12. AMOXICILLIN. [Concomitant]
     Active Substance: AMOXICILLIN
  13. ATENOLOL. [Concomitant]
     Active Substance: ATENOLOL
  14. LIDOCAINE 4% [Concomitant]
     Active Substance: LIDOCAINE
  15. ATROVENT [Concomitant]
     Active Substance: IPRATROPIUM BROMIDE
  16. HIZENTRA [Suspect]
     Active Substance: HUMAN IMMUNOGLOBULIN G
     Indication: HYPOGAMMAGLOBULINAEMIA
     Dosage: 2GM 10ML VIAL
  17. HIZENTRA [Suspect]
     Active Substance: HUMAN IMMUNOGLOBULIN G
     Dosage: 10GM 50ML VIAL
     Route: 058
  18. SINGULAIR [Concomitant]
     Active Substance: MONTELUKAST SODIUM
  19. TRAMADOL. [Concomitant]
     Active Substance: TRAMADOL
  20. PREVACID [Concomitant]
     Active Substance: LANSOPRAZOLE
  21. ACETAMINOPHEN. [Concomitant]
     Active Substance: ACETAMINOPHEN
  22. DIPHENHYDRAMINE. [Concomitant]
     Active Substance: DIPHENHYDRAMINE

REACTIONS (6)
  - Pain [Unknown]
  - Headache [Unknown]
  - Pyrexia [Unknown]
  - Oedema peripheral [Unknown]
  - Face oedema [Unknown]
  - Nausea [Unknown]
